FAERS Safety Report 9416358 (Version 1)
Quarter: 2013Q3

REPORT INFORMATION
  Report Type: Spontaneous
  Country: US (occurrence: None)
  Receive Date: 20130723
  Receipt Date: 20130723
  Transmission Date: 20140515
  Serious: No
  Sender: FDA-Public Use
  Company Number: None

PATIENT
  Age: 61 Year
  Sex: Female
  Weight: 79.83 kg

DRUGS (1)
  1. METFORMIN HCL EXTENDED RELEASE [Suspect]
     Indication: DIABETES MELLITUS
     Dosage: 1 PILL
     Route: 048
     Dates: start: 20130719, end: 20130719

REACTIONS (7)
  - Abdominal distension [None]
  - Dyspnoea [None]
  - Heart rate increased [None]
  - Chest pain [None]
  - Feeling cold [None]
  - Feeling abnormal [None]
  - Diarrhoea [None]
